FAERS Safety Report 10088969 (Version 5)
Quarter: 2014Q3

REPORT INFORMATION
  Report Type: Spontaneous
  Country: AU (occurrence: AU)
  Receive Date: 20140421
  Receipt Date: 20140729
  Transmission Date: 20150326
  Serious: Yes (Death, Other)
  Sender: FDA-Public Use
  Company Number: AU-CELGENEUS-008-50794-14041315

PATIENT
  Age: 86 Year
  Sex: Female

DRUGS (2)
  1. VIDAZA [Suspect]
     Active Substance: AZACITIDINE
     Dosage: 80 MILLIGRAM
     Route: 065
     Dates: start: 20130325, end: 20140506
  2. VIDAZA [Suspect]
     Active Substance: AZACITIDINE
     Indication: MYELODYSPLASTIC SYNDROME
     Dosage: 80 MILLIGRAM
     Route: 065
     Dates: start: 20140331, end: 20140408

REACTIONS (3)
  - Myelodysplastic syndrome [Fatal]
  - Joint swelling [Not Recovered/Not Resolved]
  - Pyrexia [Recovered/Resolved with Sequelae]

NARRATIVE: CASE EVENT DATE: 20140407
